FAERS Safety Report 8532428-2 (Version None)
Quarter: 2012Q3

REPORT INFORMATION
  Report Type: 
  Country: None (occurrence: None)
  Receive Date: 20120724
  Receipt Date: 20120716
  Transmission Date: 20120928
  Serious: No
  Sender: FDA-Public Use
  Company Number: US-BIOGENIDEC-2012BI025660

PATIENT
  Age: 37 Year
  Sex: Female

DRUGS (2)
  1. AVONEX [Suspect]
     Indication: MULTIPLE SCLEROSIS
     Route: 030
     Dates: start: 19970501
  2. AVONEX [Suspect]
     Route: 030
     Dates: start: 19970501

REACTIONS (4)
  - FATIGUE [None]
  - PAIN IN EXTREMITY [None]
  - ARTHRALGIA [None]
  - INJECTION SITE HAEMORRHAGE [None]
